FAERS Safety Report 11026043 (Version 1)
Quarter: 2015Q2

REPORT INFORMATION
  Report Type: Spontaneous
  Country: JP (occurrence: JP)
  Receive Date: 20150414
  Receipt Date: 20150414
  Transmission Date: 20150821
  Serious: Yes (Disabling, Other)
  Sender: FDA-Public Use
  Company Number: JP-PFIZER INC-2015112634

PATIENT
  Age: 78 Year
  Sex: Male
  Weight: 62 kg

DRUGS (12)
  1. OMEPRAZOLE. [Concomitant]
     Active Substance: OMEPRAZOLE
     Route: 041
  2. INTRALIPOS [Concomitant]
     Active Substance: SOYBEAN OIL
     Route: 041
  3. BIO-THREE [Concomitant]
     Active Substance: HERBALS
     Route: 048
  4. MAGMITT [Concomitant]
     Active Substance: MAGNESIUM OXIDE
     Route: 048
  5. ROPION [Concomitant]
     Active Substance: FLURBIPROFEN AXETIL
     Route: 041
  6. ATARAX [Concomitant]
     Active Substance: HYDROXYZINE\HYDROXYZINE HYDROCHLORIDE
     Route: 041
  7. LASIX [Concomitant]
     Active Substance: FUROSEMIDE
     Route: 041
  8. ACELIO [Concomitant]
     Active Substance: ACETAMINOPHEN
     Route: 041
  9. PANTOL [Concomitant]
     Active Substance: DEXPANTHENOL
     Route: 041
  10. PRIMPERAN [Concomitant]
     Active Substance: METOCLOPRAMIDE HYDROCHLORIDE
     Route: 041
  11. ANAEMETRO [Suspect]
     Active Substance: METRONIDAZOLE
     Indication: CLOSTRIDIUM DIFFICILE INFECTION
     Dosage: 1500 MG, DAILY
     Route: 041
     Dates: start: 20150304, end: 20150308
  12. PENTAGIN [Concomitant]
     Active Substance: PENTAZOCINE HYDROCHLORIDE
     Route: 041

REACTIONS (2)
  - Amylase increased [Recovering/Resolving]
  - Pancreatitis acute [Recovering/Resolving]

NARRATIVE: CASE EVENT DATE: 20150306
